FAERS Safety Report 12270841 (Version 1)
Quarter: 2016Q2

REPORT INFORMATION
  Report Type: Spontaneous
  Country: US (occurrence: US)
  Receive Date: 20160415
  Receipt Date: 20160415
  Transmission Date: 20160815
  Serious: No
  Sender: FDA-Public Use
  Company Number: US-TEVA-634681USA

PATIENT
  Age: 41 Year
  Sex: Female

DRUGS (3)
  1. OXYCODONE [Concomitant]
     Active Substance: OXYCODONE
  2. PHENERGAN [Concomitant]
     Active Substance: PROMETHAZINE HYDROCHLORIDE
  3. ZECUITY [Suspect]
     Active Substance: SUMATRIPTAN SUCCINATE
     Indication: MIGRAINE
     Route: 062

REACTIONS (8)
  - Application site pruritus [Recovered/Resolved]
  - Device battery issue [Recovered/Resolved]
  - Oropharyngeal pain [Recovered/Resolved]
  - Application site erythema [Recovered/Resolved]
  - Muscular weakness [Recovered/Resolved]
  - Application site swelling [Recovered/Resolved]
  - Dysphagia [Recovered/Resolved]
  - Application site reaction [Recovered/Resolved]

NARRATIVE: CASE EVENT DATE: 20160209
